FAERS Safety Report 5879272-2 (Version None)
Quarter: 2008Q3

REPORT INFORMATION
  Report Type: 
  Country: None (occurrence: None)
  Receive Date: 20080909
  Receipt Date: 20080909
  Transmission Date: 20090109
  Serious: Yes (Hospitalization)
  Sender: FDA-Public Use
  Company Number: None

PATIENT
  Age: 65 Year
  Sex: Male
  Weight: 113.2 kg

DRUGS (2)
  1. PIROXICAM [Suspect]
     Indication: OSTEOARTHRITIS
     Dosage: 20 MG EVERY DAY PO
     Route: 048
     Dates: start: 20061030, end: 20080804
  2. ASPIRIN [Suspect]
     Indication: CORONARY ARTERY DISEASE
     Dosage: 81 MG EVERY DAY PO
     Route: 048
     Dates: start: 20061030

REACTIONS (4)
  - ANGINA UNSTABLE [None]
  - CHEST PAIN [None]
  - GASTRIC HAEMORRHAGE [None]
  - MELAENA [None]
